FAERS Safety Report 23993961 (Version 3)
Quarter: 2024Q3

REPORT INFORMATION
  Report Type: Spontaneous
  Country: AU (occurrence: US)
  Receive Date: 20240620
  Receipt Date: 20240711
  Transmission Date: 20241017
  Serious: Yes (Hospitalization, Disabling)
  Sender: ALVOGEN
  Company Number: None

PATIENT
  Age: 42 Year
  Sex: Female
  Weight: 94 kg

DRUGS (12)
  1. CLINDAMYCIN [Suspect]
     Active Substance: CLINDAMYCIN
     Indication: Hidradenitis
  2. MINOCYCLINE [Suspect]
     Active Substance: MINOCYCLINE HYDROCHLORIDE
     Indication: Hidradenitis
  3. INFLIXIMAB [Suspect]
     Active Substance: INFLIXIMAB
     Indication: Product used for unknown indication
     Dates: end: 2015
  4. METHOTREXATE [Suspect]
     Active Substance: METHOTREXATE
     Indication: Hidradenitis
     Route: 048
  5. DOXYCYCLINE HYCLATE [Suspect]
     Active Substance: DOXYCYCLINE HYCLATE
     Indication: Hidradenitis
  6. HUMIRA [Suspect]
     Active Substance: ADALIMUMAB
     Indication: Hidradenitis
     Route: 058
     Dates: start: 2018
  7. ANAKINRA [Suspect]
     Active Substance: ANAKINRA
     Indication: Hidradenitis
  8. REMICADE [Suspect]
     Active Substance: INFLIXIMAB
     Indication: Hidradenitis
     Route: 042
     Dates: start: 2012, end: 2015
  9. KINERET [Suspect]
     Active Substance: ANAKINRA
     Indication: Hidradenitis
  10. DOXYCYCLINE [Suspect]
     Active Substance: DOXYCYCLINE\DOXYCYCLINE HYCLATE
     Indication: Product used for unknown indication
  11. DOXYCYCLINE HYDROCHLORIDE [Suspect]
     Active Substance: DOXYCYCLINE HYDROCHLORIDE
     Indication: Product used for unknown indication
  12. ADALIMUMAB [Suspect]
     Active Substance: ADALIMUMAB\ISOPROPYL ALCOHOL
     Indication: Product used for unknown indication

REACTIONS (8)
  - Feeling abnormal [Unknown]
  - Depression [Unknown]
  - Condition aggravated [Unknown]
  - Psychiatric symptom [Unknown]
  - Pain [Unknown]
  - Therapeutic product effect incomplete [Unknown]
  - Off label use [Unknown]
  - Off label use [Unknown]
